FAERS Safety Report 10200742 (Version 3)
Quarter: 2015Q2

REPORT INFORMATION
  Report Type: Spontaneous
  Country: US (occurrence: US)
  Receive Date: 20140528
  Receipt Date: 20150626
  Transmission Date: 20150821
  Serious: Yes (Disabling, Other)
  Sender: FDA-Public Use
  Company Number: US-UCBSA-122125

PATIENT
  Sex: Female
  Weight: 81.1 kg

DRUGS (6)
  1. METHYLPHENIDATE HYDROCHLORIDE. [Suspect]
     Active Substance: METHYLPHENIDATE HYDROCHLORIDE
     Dosage: 18 MG, 2X/DAY (BID)
     Route: 048
     Dates: end: 20140403
  2. CONCERTA [Concomitant]
     Active Substance: METHYLPHENIDATE HYDROCHLORIDE
     Indication: NARCOLEPSY
     Dosage: 18 MG TABLET
  3. METHYLPHENIDATE HYDROCHLORIDE. [Suspect]
     Active Substance: METHYLPHENIDATE HYDROCHLORIDE
     Indication: NARCOLEPSY
     Dosage: 18 MG, 2X/DAY (BID)
     Route: 048
     Dates: start: 201309, end: 2013
  4. CONCERTA [Concomitant]
     Active Substance: METHYLPHENIDATE HYDROCHLORIDE
     Indication: CATAPLEXY
  5. METHYLPHENIDATE HYDROCHLORIDE. [Suspect]
     Active Substance: METHYLPHENIDATE HYDROCHLORIDE
     Indication: CATAPLEXY
     Dosage: 18 MG, 2X/DAY (BID)
     Route: 048
     Dates: start: 201311, end: 2013
  6. ZOLPIDEM [Concomitant]
     Active Substance: ZOLPIDEM\ZOLPIDEM TARTRATE
     Indication: NARCOLEPSY
     Dosage: 12.5 MG, ONCE DAILY (QD) AT BED TIME
     Route: 048
     Dates: start: 2005

REACTIONS (7)
  - Depression [Recovering/Resolving]
  - Formication [Recovered/Resolved]
  - Drug ineffective [Unknown]
  - Headache [Recovered/Resolved]
  - Fatigue [Recovered/Resolved]
  - Abnormal weight gain [Recovering/Resolving]
  - Cataplexy [Recovering/Resolving]

NARRATIVE: CASE EVENT DATE: 2013
